FAERS Safety Report 9432177 (Version 1)
Quarter: 2013Q3

REPORT INFORMATION
  Report Type: Spontaneous
  Country: US (occurrence: US)
  Receive Date: 20130731
  Receipt Date: 20130731
  Transmission Date: 20140515
  Serious: No
  Sender: FDA-Public Use
  Company Number: US-TARO-2012P1061189

PATIENT
  Age: 49 Year
  Sex: Female

DRUGS (5)
  1. DESOXIMETASONE [Suspect]
     Indication: RASH
     Route: 061
     Dates: start: 20120811, end: 201208
  2. DESOXIMETASONE [Suspect]
     Indication: PRURITUS
     Route: 061
     Dates: start: 20120811, end: 201208
  3. MORPHINE PAIN PUMP [Concomitant]
     Dates: start: 201205
  4. OXYCONTIN [Concomitant]
  5. ^OXYCODONE 10/325 MG TABLETS^ [Concomitant]

REACTIONS (3)
  - Ingrown hair [Recovered/Resolved]
  - Skin irritation [Recovered/Resolved]
  - Acne [Recovered/Resolved]
